FAERS Safety Report 25660380 (Version 1)
Quarter: 2025Q3

REPORT INFORMATION
  Report Type: Spontaneous
  Country: EU (occurrence: EU)
  Receive Date: 20250808
  Receipt Date: 20250808
  Transmission Date: 20251020
  Serious: Yes (Other)
  Sender: SANOFI AVENTIS
  Company Number: EU-SA-2025SA138287

PATIENT
  Age: 69 Year
  Sex: Male

DRUGS (3)
  1. DUPIXENT [Suspect]
     Active Substance: DUPILUMAB
     Indication: Nasal polyps
     Dosage: 300 MG, Q15D
     Route: 058
     Dates: start: 202411, end: 202501
  2. XARELTO [Concomitant]
     Active Substance: RIVAROXABAN
     Dates: start: 2020
  3. PROPRANOLOL HYDROCHLORIDE [Concomitant]
     Active Substance: PROPRANOLOL HYDROCHLORIDE
     Dates: start: 2015

REACTIONS (9)
  - Erysipelas [Unknown]
  - Skin fissures [Unknown]
  - Oedema peripheral [Unknown]
  - Rash [Recovered/Resolved]
  - Dermatitis acneiform [Recovering/Resolving]
  - Acne [Recovering/Resolving]
  - Psoriasis [Unknown]
  - Skin lesion [Unknown]
  - C-reactive protein increased [Unknown]

NARRATIVE: CASE EVENT DATE: 20250101
